FAERS Safety Report 8887506 (Version 1)
Quarter: 2012Q4

REPORT INFORMATION
  Report Type: Spontaneous
  Country: US (occurrence: None)
  Receive Date: 20121101
  Receipt Date: 20121101
  Transmission Date: 20130627
  Serious: Yes (Hospitalization)
  Sender: FDA-Public Use
  Company Number: None

PATIENT
  Age: 65 Year
  Sex: Female
  Weight: 138.2 kg

DRUGS (6)
  1. EXCEDRIN [Suspect]
     Indication: CHRONIC BACK PAIN
     Dosage: 2 TABLETS Q6HRS PRN PO
RECENT
     Route: 048
  2. SLIPPERY ELM [Concomitant]
  3. PSEUDOEPHEDRINE [Concomitant]
  4. LEVOTHYROXINE [Concomitant]
  5. HYDROCODONE/APAP [Concomitant]
  6. ALBUTEROL INHALER [Concomitant]

REACTIONS (5)
  - Chronic obstructive pulmonary disease [None]
  - Upper gastrointestinal haemorrhage [None]
  - Blood urea increased [None]
  - Duodenitis [None]
  - Gastric ulcer [None]
